FAERS Safety Report 9320313 (Version 2)
Quarter: 2013Q2

REPORT INFORMATION
  Report Type: Spontaneous
  Country: FR (occurrence: FR)
  Receive Date: 20130530
  Receipt Date: 20130613
  Transmission Date: 20140414
  Serious: Yes (Hospitalization)
  Sender: FDA-Public Use
  Company Number: FR-B.I. PHARMACEUTICALS,INC./RIDGEFIELD-2013-FF-01446FF

PATIENT
  Age: 88 Year
  Sex: Male

DRUGS (5)
  1. PRADAXA [Suspect]
     Indication: ATRIAL FIBRILLATION
     Dosage: 220 MG
     Route: 048
  2. ALLOPURINOL [Concomitant]
  3. AMIODARONE [Concomitant]
  4. KENZEN [Concomitant]
  5. PIRACETAM [Concomitant]

REACTIONS (2)
  - Haematoma [Recovered/Resolved]
  - Skin discolouration [Recovered/Resolved]
